FAERS Safety Report 13779199 (Version 1)
Quarter: 2017Q3

REPORT INFORMATION
  Report Type: Spontaneous
  Country: US (occurrence: US)
  Receive Date: 20170721
  Receipt Date: 20170721
  Transmission Date: 20171127
  Serious: Yes (Hospitalization)
  Sender: FDA-Public Use
  Company Number: PHHY2017US105020

PATIENT
  Age: 14 Year
  Sex: Male

DRUGS (4)
  1. LORAZEPAM. [Concomitant]
     Active Substance: LORAZEPAM
     Indication: NEUROLEPTIC MALIGNANT SYNDROME
     Route: 065
  2. VALPROIC ACID. [Concomitant]
     Active Substance: VALPROIC ACID
     Indication: NEUROLEPTIC MALIGNANT SYNDROME
     Route: 065
  3. LITHIUM. [Concomitant]
     Active Substance: LITHIUM
     Indication: NEUROLEPTIC MALIGNANT SYNDROME
     Route: 065
  4. CHLORPROMAZINE. [Suspect]
     Active Substance: CHLORPROMAZINE
     Indication: NEUROLEPTIC MALIGNANT SYNDROME
     Route: 065

REACTIONS (6)
  - Mutism [Unknown]
  - Psychomotor hyperactivity [Unknown]
  - Blood creatine phosphokinase increased [Unknown]
  - Posturing [Unknown]
  - Drug intolerance [Unknown]
  - Staring [Unknown]
